FAERS Safety Report 4379855-5 (Version None)
Quarter: 2004Q2

REPORT INFORMATION
  Report Type: 
  Country: None (occurrence: None)
  Receive Date: 20040610
  Receipt Date: 20040608
  Transmission Date: 20050107
  Serious: Yes (Hospitalization, Other)
  Sender: FDA-Public Use
  Company Number: 200415278BWH

PATIENT
  Age: 63 Year
  Sex: Male

DRUGS (8)
  1. AVELOX [Suspect]
     Dates: start: 20031001, end: 20031026
  2. WARFARIN SODIUM [Concomitant]
  3. FUROSEMIDE [Concomitant]
  4. ENALAPRIL MALEATE [Concomitant]
  5. ASPIRIN [Concomitant]
  6. AZTREONAM [Concomitant]
  7. ZOSYN [Concomitant]
  8. CIPRO [Concomitant]

REACTIONS (7)
  - CARDIAC FAILURE [None]
  - DRUG TOXICITY [None]
  - GENERALISED OEDEMA [None]
  - HEPATIC CIRRHOSIS [None]
  - HEPATIC FAILURE [None]
  - HEPATITIS [None]
  - OEDEMA PERIPHERAL [None]
